FAERS Safety Report 4617572-4 (Version None)
Quarter: 2005Q1

REPORT INFORMATION
  Report Type: 
  Country: None (occurrence: None)
  Receive Date: 20050322
  Receipt Date: 20050309
  Transmission Date: 20050727
  Serious: Yes (Other)
  Sender: FDA-Public Use
  Company Number: 2005042988

PATIENT
  Age: 39 Year
  Sex: Female
  Weight: 53.5244 kg

DRUGS (2)
  1. NEURONTIN [Suspect]
     Indication: TREMOR
     Dosage: 1600 MG DAILY, ORAL
     Route: 048
     Dates: start: 20040505, end: 20040101
  2. CLONAZEPAM [Concomitant]

REACTIONS (7)
  - ACTIVITIES OF DAILY LIVING IMPAIRED [None]
  - ARTERIOVENOUS MALFORMATION [None]
  - CONDITION AGGRAVATED [None]
  - MEDICATION ERROR [None]
  - SPINAL DISORDER [None]
  - SUICIDAL IDEATION [None]
  - TREMOR [None]
